FAERS Safety Report 8558393-X (Version None)
Quarter: 2012Q3

REPORT INFORMATION
  Report Type: 
  Country: None (occurrence: None)
  Receive Date: 20120727
  Receipt Date: 20120727
  Transmission Date: 20120928
  Serious: Yes (Death)
  Sender: FDA-Public Use
  Company Number: None

PATIENT
  Age: 85 Year
  Sex: Female
  Weight: 71.45 kg

DRUGS (10)
  1. LASIX [Concomitant]
  2. ASPIRIN [Concomitant]
  3. RYTHMOL [Suspect]
     Indication: ATRIAL FIBRILLATION
     Dosage: 600MG (4X150MG) ONCE PO
     Route: 048
     Dates: start: 20120316
  4. AMITRIPTYLINE HCL [Concomitant]
  5. ATENOLOL [Concomitant]
  6. CEFTRIAXONE [Concomitant]
  7. OXYCODONE HCL [Concomitant]
  8. CENTRUM [Concomitant]
  9. WARFARIN SODIUM [Concomitant]
  10. PACERONE [Concomitant]

REACTIONS (8)
  - ACUTE RESPIRATORY FAILURE [None]
  - RENAL FAILURE ACUTE [None]
  - ELECTROCARDIOGRAM QRS COMPLEX PROLONGED [None]
  - PROTEUS INFECTION [None]
  - HYPOXIA [None]
  - CARDIOGENIC SHOCK [None]
  - HYPOTENSION [None]
  - URINARY TRACT INFECTION BACTERIAL [None]
